FAERS Safety Report 20469301 (Version 2)
Quarter: 2022Q1

REPORT INFORMATION
  Report Type: Spontaneous
  Country: US (occurrence: US)
  Receive Date: 20220214
  Receipt Date: 20220222
  Transmission Date: 20220423
  Serious: No
  Sender: FDA-Public Use
  Company Number: US-AMGEN-USASP2022023534

PATIENT
  Age: 62 Year
  Sex: Male
  Weight: 154.65 kg

DRUGS (2)
  1. AIMOVIG [Suspect]
     Active Substance: ERENUMAB-AOOE
     Indication: Migraine without aura
     Dosage: 140 MILLIGRAM, QMO
     Route: 065
     Dates: start: 20181009
  2. AIMOVIG [Suspect]
     Active Substance: ERENUMAB-AOOE
     Indication: Antiphospholipid syndrome

REACTIONS (4)
  - Accidental exposure to product [Unknown]
  - Wrong technique in product usage process [Unknown]
  - Device difficult to use [Unknown]
  - Inappropriate schedule of product administration [Unknown]

NARRATIVE: CASE EVENT DATE: 20220201
